FAERS Safety Report 7481766-3 (Version None)
Quarter: 2011Q2

REPORT INFORMATION
  Report Type: 
  Country: None (occurrence: None)
  Receive Date: 20110516
  Receipt Date: 20110510
  Transmission Date: 20111010
  Serious: Yes (Other)
  Sender: FDA-Public Use
  Company Number: B0719242A

PATIENT
  Age: 55 Year
  Sex: Male

DRUGS (7)
  1. COTRIM [Concomitant]
  2. FLUCONAZOLE [Concomitant]
  3. NYSTATIN [Concomitant]
  4. COMBIVIR [Suspect]
     Indication: HIV TEST POSITIVE
     Dosage: 2UNIT PER DAY
     Route: 048
  5. PYRIDOXINE [Concomitant]
  6. EFAVIRENZ [Concomitant]
  7. RIMSTAR (ISONIAZID + RIFAMPIN + PYRAZINAMIDE + ETHAMBUTOL) [Concomitant]

REACTIONS (3)
  - HAEMOGLOBIN DECREASED [None]
  - HAEMATOCRIT DECREASED [None]
  - RED BLOOD CELL ABNORMALITY [None]
